FAERS Safety Report 10065282 (Version 4)
Quarter: 2014Q4

REPORT INFORMATION
  Report Type: Spontaneous
  Country: JP (occurrence: JP)
  Receive Date: 20140408
  Receipt Date: 20141121
  Transmission Date: 20150528
  Serious: Yes (Hospitalization, Other)
  Sender: FDA-Public Use
  Company Number: JP-PFIZER INC-2014096739

PATIENT
  Age: 77 Year
  Sex: Female
  Weight: 45 kg

DRUGS (22)
  1. GASLON N_OD [Concomitant]
     Active Substance: IRSOGLADINE MALEATE
     Dosage: UNK
     Route: 048
  2. PREDONINE [Concomitant]
     Active Substance: PREDNISOLONE\PREDNISOLONE ACETATE\PREDNISOLONE SODIUM SUCCINATE
     Indication: ASTHMA
     Dosage: 60 MG, DAILY
     Route: 041
     Dates: start: 20131107, end: 20131111
  3. GRACEVIT [Concomitant]
     Active Substance: SITAFLOXACIN
     Indication: BRONCHOPNEUMONIA
     Dosage: UNK
     Route: 048
     Dates: start: 20131220, end: 20131224
  4. FINIBAX [Concomitant]
     Active Substance: DORIPENEM MONOHYDRATE
     Indication: BRONCHOPNEUMONIA
     Dosage: UNK
     Route: 041
     Dates: start: 20131227, end: 20140101
  5. LIPITOR [Concomitant]
     Active Substance: ATORVASTATIN CALCIUM
     Dosage: UNK
     Route: 048
  6. MONTELUKAST [Concomitant]
     Active Substance: MONTELUKAST SODIUM
     Dosage: UNK
     Route: 048
  7. PARIET [Concomitant]
     Active Substance: RABEPRAZOLE SODIUM
     Dosage: UNK
     Route: 048
  8. GASMOTIN [Concomitant]
     Active Substance: MOSAPRIDE CITRATE
     Dosage: UNK
     Route: 048
  9. ADOAIR [Concomitant]
     Active Substance: FLUTICASONE PROPIONATE\SALMETEROL XINAFOATE
     Indication: ASTHMA
     Dosage: UNK
     Route: 055
     Dates: start: 20131030
  10. MAXIPIME [Concomitant]
     Active Substance: CEFEPIME HYDROCHLORIDE
     Indication: BRONCHOPNEUMONIA
     Dosage: 2 G, DAILY
     Route: 041
     Dates: start: 20131205, end: 20131215
  11. LASIX [Concomitant]
     Active Substance: FUROSEMIDE
     Dosage: 20 MG, DAILY
     Route: 041
     Dates: start: 20131108
  12. BIO-THREE [Concomitant]
     Active Substance: HERBALS
     Indication: DIARRHOEA
     Dosage: UNK
     Route: 048
     Dates: start: 20140110
  13. DALACIN [Concomitant]
     Active Substance: CLINDAMYCIN\CLINDAMYCIN PHOSPHATE
     Indication: BRONCHOPNEUMONIA
     Dosage: UNK
     Dates: start: 20131227, end: 20140101
  14. LASIX [Concomitant]
     Active Substance: FUROSEMIDE
     Indication: PLEURAL EFFUSION
     Dosage: 160 MG, DAILY
     Route: 048
     Dates: start: 20140111
  15. MUCOSTA [Concomitant]
     Active Substance: REBAMIPIDE
     Dosage: UNK
  16. CRAVIT [Concomitant]
     Active Substance: LEVOFLOXACIN
     Indication: BRONCHOPNEUMONIA
     Dosage: 500 MG, DAILY
     Route: 048
     Dates: start: 20131115, end: 20131121
  17. ZOSYN [Suspect]
     Active Substance: PIPERACILLIN SODIUM\TAZOBACTAM SODIUM
     Indication: BRONCHOPNEUMONIA
     Dosage: 4.5 G, 3X/DAY
     Route: 041
     Dates: start: 20131101, end: 20131108
  18. ROCEPHIN [Suspect]
     Active Substance: CEFTRIAXONE SODIUM
     Indication: BRONCHOPNEUMONIA
     Dosage: 2 G, UNK
     Route: 041
     Dates: start: 20131027, end: 20131031
  19. OMEGACIN [Concomitant]
     Active Substance: BIAPENEM
     Indication: BRONCHOPNEUMONIA
     Dosage: UNK
     Route: 041
     Dates: start: 20140103, end: 20140106
  20. ZOSYN [Suspect]
     Active Substance: PIPERACILLIN SODIUM\TAZOBACTAM SODIUM
     Dosage: 4.5 G, 3X/DAY
     Route: 041
     Dates: start: 20140107, end: 20140116
  21. GASTROM [Concomitant]
     Active Substance: ECABET
     Dosage: UNK
     Route: 048
  22. ALLEGRA [Concomitant]
     Active Substance: FEXOFENADINE HYDROCHLORIDE
     Indication: RASH
     Dosage: UNK
     Route: 048
     Dates: start: 20131215

REACTIONS (1)
  - Eosinophilic pneumonia acute [Recovering/Resolving]

NARRATIVE: CASE EVENT DATE: 20131205
